FAERS Safety Report 7514610-6 (Version None)
Quarter: 2011Q2

REPORT INFORMATION
  Report Type: 
  Country: None (occurrence: None)
  Receive Date: 20110601
  Receipt Date: 20110517
  Transmission Date: 20111010
  Serious: Yes (Hospitalization)
  Sender: FDA-Public Use
  Company Number: US-JNJFOC-20110510222

PATIENT
  Sex: Female
  Weight: 41.1 kg

DRUGS (17)
  1. REMICADE [Suspect]
     Route: 042
     Dates: start: 20090519
  2. FERROUS SULFATE TAB [Concomitant]
  3. ANTIBIOTICS [Suspect]
     Indication: INFLAMMATORY BOWEL DISEASE
  4. PROBIOTICS [Concomitant]
  5. MULTI-VITAMINS [Concomitant]
  6. LACTAID [Concomitant]
  7. FLUTICASONE PROPIONATE [Concomitant]
     Route: 055
  8. MESALAMINE [Suspect]
     Indication: COLITIS ULCERATIVE
     Route: 048
  9. VITAMIN D [Concomitant]
  10. BENADRYL [Concomitant]
  11. PREVACID [Concomitant]
  12. PREDNISONE [Concomitant]
  13. REMICADE [Suspect]
     Indication: COLITIS ULCERATIVE
     Route: 042
     Dates: start: 20110510
  14. SINGULAIR [Concomitant]
  15. SUDAFED NOS [Concomitant]
  16. GAS X [Concomitant]
  17. ACETAMINOPHEN [Concomitant]

REACTIONS (3)
  - CLOSTRIDIAL INFECTION [None]
  - DEHYDRATION [None]
  - HYPONATRAEMIA [None]
